FAERS Safety Report 4819212-8 (Version None)
Quarter: 2005Q4

REPORT INFORMATION
  Report Type: 
  Country: None (occurrence: None)
  Receive Date: 20051103
  Receipt Date: 20051024
  Transmission Date: 20060501
  Serious: Yes (Disabling)
  Sender: FDA-Public Use
  Company Number: GB-GLAXOSMITHKLINE-B0398401A

PATIENT
  Age: 22 Year
  Sex: Female

DRUGS (8)
  1. RITONAVIR [Suspect]
     Indication: HIV ANTIGEN
     Dosage: 100MG PER DAY
     Route: 048
     Dates: end: 20050901
  2. FLUTICASONE [Suspect]
     Indication: ASTHMA
     Dosage: 250MG TWICE PER DAY
     Dates: end: 20050901
  3. TENOFOVIR DISOPROXIL FUMARATE [Concomitant]
     Dosage: 300MG PER DAY
     Route: 048
  4. ATAZANAVIR [Concomitant]
     Dosage: 300MG PER DAY
     Route: 048
  5. FUROSEMIDE [Concomitant]
     Dosage: 20MG PER DAY
     Route: 048
  6. SALBUTAMOL [Concomitant]
     Dosage: 2PUFF AS REQUIRED
  7. SALMETEROL [Concomitant]
     Dosage: 2PUFF TWICE PER DAY
  8. DIDANOSINE [Concomitant]
     Route: 048

REACTIONS (2)
  - CUSHING'S SYNDROME [None]
  - DRUG INTERACTION [None]
